FAERS Safety Report 8983107 (Version 5)
Quarter: 2013Q3

REPORT INFORMATION
  Report Type: Spontaneous
  Country: JP (occurrence: JP)
  Receive Date: 20121224
  Receipt Date: 20130918
  Transmission Date: 20140515
  Serious: Yes (Other)
  Sender: FDA-Public Use
  Company Number: JP-AMGEN-JPNSP2012082519

PATIENT
  Age: 62 Year
  Sex: Female
  Weight: 37 kg

DRUGS (26)
  1. RANMARK [Suspect]
     Indication: METASTASES TO BONE
     Dosage: 120 MG, Q4WK
     Route: 058
     Dates: start: 20120710, end: 20121113
  2. PANTOSIN [Concomitant]
     Indication: RECTAL CANCER
     Dosage: UNK UNK, TID
     Dates: start: 20120610
  3. PANTOSIN [Concomitant]
     Route: 065
     Dates: start: 20120610
  4. MAGMITT [Concomitant]
     Indication: RECTAL CANCER
     Dosage: UNK UNK, TID
     Route: 048
     Dates: start: 20120610
  5. MAGMITT [Concomitant]
     Route: 048
     Dates: start: 20120610
  6. PURSENNID [Concomitant]
     Dosage: UNKNOWN
     Route: 065
  7. DECADRON [Concomitant]
     Indication: RECTAL CANCER
     Dosage: UNK UNK, QD
     Route: 048
     Dates: start: 20120604
  8. DECADRON [Concomitant]
     Route: 048
     Dates: start: 20120604
  9. LYRICA [Concomitant]
     Indication: RECTAL CANCER
     Dosage: UNK UNK, BID
     Route: 048
     Dates: start: 20120604
  10. LYRICA [Concomitant]
     Route: 048
     Dates: start: 20120604
  11. FENTOS [Concomitant]
     Indication: RECTAL CANCER
     Dosage: UNK
     Route: 062
     Dates: start: 20120604
  12. FENTOS [Concomitant]
     Route: 062
     Dates: start: 20120604
  13. ATARAX [Concomitant]
     Dosage: UNKNOWN
     Route: 065
  14. 5-FU                               /00098801/ [Concomitant]
     Dosage: UNKNOWN
     Route: 041
     Dates: start: 20120626
  15. LEVOFOLINATE CALCIUM [Concomitant]
     Dosage: UNKNOWN
     Route: 041
     Dates: start: 20120626
  16. OXALIPLATIN [Concomitant]
     Dosage: UNK
     Route: 041
     Dates: start: 20120626
  17. OXALIPLATIN [Concomitant]
     Dosage: UNKNOWN
     Route: 041
     Dates: start: 20120626
  18. OXALIPLATIN [Concomitant]
     Dosage: UNKNOWN
     Route: 041
     Dates: start: 20120626
  19. METGLUCO [Concomitant]
     Indication: DIABETES MELLITUS
     Dosage: 3 DF, TID
     Route: 048
  20. NESINA [Concomitant]
     Indication: DIABETES MELLITUS
     Dosage: 1 DF, QD
     Route: 048
  21. CRESTOR [Concomitant]
     Indication: HYPERLIPIDAEMIA
     Dosage: 1 DF, QD
     Route: 048
     Dates: start: 20121016
  22. AMARYL [Concomitant]
     Indication: DIABETES MELLITUS
     Dosage: 1 DF, QD
     Route: 048
     Dates: start: 20121016
  23. BEVACIZUMAB [Concomitant]
     Dosage: UNKNOWN
     Route: 041
     Dates: start: 20120626
  24. NESINA (ALOGLIPTIN BENZOATE) [Concomitant]
     Indication: DIABETES MELLITUS
     Route: 048
  25. 5-FU [Concomitant]
     Dosage: UNKNOWN
     Route: 041
     Dates: start: 20120626
  26. 5-FU [Concomitant]
     Dosage: UNKNOWN
     Route: 041
     Dates: start: 20120626

REACTIONS (2)
  - Osteonecrosis of jaw [Not Recovered/Not Resolved]
  - Osteomyelitis [Not Recovered/Not Resolved]
